FAERS Safety Report 5966269-7 (Version None)
Quarter: 2008Q4

REPORT INFORMATION
  Report Type: 
  Country: None (occurrence: None)
  Receive Date: 20081119
  Receipt Date: 20080903
  Transmission Date: 20090506
  Serious: No
  Sender: FDA-Public Use
  Company Number: WAES 0809USA00513

PATIENT
  Age: 52 Year
  Sex: Female

DRUGS (4)
  1. JANUVIA [Suspect]
     Indication: TYPE 2 DIABETES MELLITUS
     Dosage: 100 MG/DAILY/PO
     Route: 048
     Dates: start: 20080701, end: 20080902
  2. TEKTURNA [Concomitant]
  3. VICODIN [Concomitant]
  4. IBUPROFEN TABLETS [Concomitant]

REACTIONS (4)
  - CONTUSION [None]
  - RASH PRURITIC [None]
  - RASH VESICULAR [None]
  - SKIN DISCOLOURATION [None]
